FAERS Safety Report 14956944 (Version 1)
Quarter: 2018Q2

REPORT INFORMATION
  Report Type: Spontaneous
  Country: US (occurrence: US)
  Receive Date: 20180531
  Receipt Date: 20180531
  Transmission Date: 20180711
  Serious: No
  Sender: FDA-Public Use
  Company Number: US-ASTRAZENECA-2018SE68073

PATIENT
  Sex: Female
  Weight: 96.6 kg

DRUGS (8)
  1. METFORMIN [Concomitant]
     Active Substance: METFORMIN HYDROCHLORIDE
     Indication: DIABETES MELLITUS
     Route: 048
  2. GLIMEPIRIDE. [Concomitant]
     Active Substance: GLIMEPIRIDE
     Indication: DIABETES MELLITUS
     Route: 048
  3. METFORMIN [Concomitant]
     Active Substance: METFORMIN HYDROCHLORIDE
     Indication: DIABETES MELLITUS
     Route: 048
  4. LOSARTAN. [Concomitant]
     Active Substance: LOSARTAN
     Indication: BLOOD CHOLESTEROL INCREASED
     Dosage: EVERY DAY (50/12.5)
     Route: 048
  5. LEVATOL [Concomitant]
     Active Substance: PENBUTOLOL SULFATE
     Indication: HYPERTENSION
     Route: 048
  6. LEVATOL [Concomitant]
     Active Substance: PENBUTOLOL SULFATE
     Indication: BLOOD CHOLESTEROL INCREASED
     Route: 048
  7. BYDUREON [Suspect]
     Active Substance: EXENATIDE
     Indication: BLOOD GLUCOSE INCREASED
     Route: 065
  8. LOSARTAN. [Concomitant]
     Active Substance: LOSARTAN
     Indication: HYPERTENSION
     Dosage: EVERY DAY (50/12.5)
     Route: 048

REACTIONS (2)
  - Muscle spasms [Unknown]
  - Headache [Recovered/Resolved]
